FAERS Safety Report 8519046-7 (Version None)
Quarter: 2012Q3

REPORT INFORMATION
  Report Type: 
  Country: None (occurrence: None)
  Receive Date: 20120718
  Receipt Date: 20120710
  Transmission Date: 20120928
  Serious: Yes (Death, Hospitalization, Other)
  Sender: FDA-Public Use
  Company Number: PHHY2011FR07287

PATIENT
  Age: 40 Year
  Sex: Female

DRUGS (3)
  1. PYRAZINAMIDE [Suspect]
     Indication: PULMONARY TUBERCULOSIS
  2. RIFAMPICIN [Concomitant]
     Indication: PULMONARY TUBERCULOSIS
  3. ISONIAZID [Concomitant]
     Indication: PULMONARY TUBERCULOSIS

REACTIONS (7)
  - ACUTE RESPIRATORY DISTRESS SYNDROME [None]
  - BLOOD CREATININE INCREASED [None]
  - SEPTIC SHOCK [None]
  - ACUTE HEPATIC FAILURE [None]
  - HEPATIC ENCEPHALOPATHY [None]
  - JAUNDICE [None]
  - HEPATITIS [None]
